FAERS Safety Report 18868169 (Version 1)
Quarter: 2021Q1

REPORT INFORMATION
  Report Type: Spontaneous
  Country: US (occurrence: US)
  Receive Date: 20210209
  Receipt Date: 20210209
  Transmission Date: 20210420
  Serious: Yes (Other)
  Sender: FDA-Public Use
  Company Number: US-BIOCODEX SA-2021000035

PATIENT

DRUGS (4)
  1. EPIDIOLEX [Concomitant]
     Active Substance: CANNABIDIOL
  2. DIACOMIT [Suspect]
     Active Substance: STIRIPENTOL
     Indication: IDIOPATHIC GENERALISED EPILEPSY
     Dosage: 500 MG TWICE A DAY
     Route: 065
     Dates: start: 20190620
  3. KEPPRA [Concomitant]
     Active Substance: LEVETIRACETAM
  4. ONFI [Concomitant]
     Active Substance: CLOBAZAM

REACTIONS (2)
  - Seizure [Unknown]
  - Product use in unapproved indication [Unknown]
